FAERS Safety Report 9350720 (Version 3)
Quarter: 2013Q3

REPORT INFORMATION
  Report Type: Report from Study
  Country: US (occurrence: US)
  Receive Date: 20130617
  Receipt Date: 20130712
  Transmission Date: 20140515
  Serious: Yes (Hospitalization)
  Sender: FDA-Public Use
  Company Number: PHEH2013US011812

PATIENT
  Age: 69 Year
  Sex: Female
  Weight: 90.25 kg

DRUGS (7)
  1. GLEEVEC [Suspect]
     Indication: CHRONIC MYELOID LEUKAEMIA
     Dosage: 400 MG, DAILY
     Route: 048
     Dates: start: 200904
  2. GLEEVEC [Suspect]
     Dosage: 400 MG, DAILY
     Route: 048
     Dates: start: 201305
  3. AMOXICILLIN [Concomitant]
     Dosage: 875/105 UKN, BID
     Route: 048
  4. TRIAMCINOLONE [Concomitant]
     Dosage: UNK UKN, UNK
  5. SYNTHROID [Concomitant]
     Dosage: 50 UG, QD
     Route: 048
  6. VITAMIN D3 [Concomitant]
     Dosage: 1000 U, QD
     Route: 048
  7. MIRALAX [Concomitant]
     Dosage: UNK UKN, UNK

REACTIONS (7)
  - Cardiac disorder [Unknown]
  - Gastrooesophageal reflux disease [Recovered/Resolved]
  - Chest pain [Recovered/Resolved]
  - Nausea [Recovered/Resolved]
  - Dyspepsia [Unknown]
  - Diarrhoea [Unknown]
  - Sinusitis [Unknown]
